FAERS Safety Report 7763815-8 (Version None)
Quarter: 2011Q3

REPORT INFORMATION
  Report Type: 
  Country: None (occurrence: None)
  Receive Date: 20110921
  Receipt Date: 20100813
  Transmission Date: 20111222
  Serious: No
  Sender: FDA-Public Use
  Company Number: US-BAYER-201033681NA

PATIENT
  Age: 19 Year
  Sex: Female

DRUGS (3)
  1. TRAZODONE HCL [Concomitant]
     Indication: SLEEP DISORDER
     Dosage: UNK
  2. MIRENA [Suspect]
     Indication: CONTRACEPTION
     Dosage: 20 MCG/24HR, CONT
     Route: 015
     Dates: start: 20100813
  3. LAMICTAL [Concomitant]
     Indication: PARTIAL SEIZURES
     Dosage: 650 MG, QD
     Route: 048

REACTIONS (1)
  - DEVICE DISLOCATION [None]
